FAERS Safety Report 19389144 (Version 5)
Quarter: 2022Q2

REPORT INFORMATION
  Report Type: Report from Study
  Country: AU (occurrence: AU)
  Receive Date: 20210607
  Receipt Date: 20220416
  Transmission Date: 20220721
  Serious: Yes (Life-Threatening, Hospitalization)
  Sender: FDA-Public Use
  Company Number: AU-BAXTER-2021BAX014429

PATIENT
  Age: 6 Year
  Sex: Male
  Weight: 20.8 kg

DRUGS (9)
  1. CYCLOPHOSPHAMIDE [Suspect]
     Active Substance: CYCLOPHOSPHAMIDE
     Indication: Embryonal rhabdomyosarcoma
     Route: 065
     Dates: start: 20210310, end: 20210408
  2. TEMSIROLIMUS [Suspect]
     Active Substance: TEMSIROLIMUS
     Indication: Embryonal rhabdomyosarcoma
     Dosage: CYCLE 1-8; TOTAL DOSE ADMINISTERED IN 8TH COURSE WAS 13 MG
     Route: 065
     Dates: start: 20201003, end: 20210408
  3. TEMSIROLIMUS [Suspect]
     Active Substance: TEMSIROLIMUS
     Dosage: LAST DOSE PRIOR TO SAE
     Route: 065
     Dates: start: 20210408, end: 20210408
  4. VINCRISTINE SULFATE [Suspect]
     Active Substance: VINCRISTINE SULFATE
     Indication: Embryonal rhabdomyosarcoma
     Dosage: CYCLE 1-3
     Route: 065
     Dates: start: 20201003, end: 20210408
  5. VINCRISTINE SULFATE [Suspect]
     Active Substance: VINCRISTINE SULFATE
     Dosage: CYCLE 4-8; DOSE REDUCED TO 50%; TOTAL DOSE ADMINISTERED IN 8TH COURSE WAS 0.6 MG
     Route: 065
     Dates: start: 20201208
  6. VINCRISTINE SULFATE [Suspect]
     Active Substance: VINCRISTINE SULFATE
     Dosage: LAST DOSE PRIOR TO SAE
     Route: 065
     Dates: start: 20210408, end: 20210408
  7. IRINOTECAN HYDROCHLORIDE [Suspect]
     Active Substance: IRINOTECAN HYDROCHLORIDE
     Indication: Embryonal rhabdomyosarcoma
     Route: 065
  8. DACTINOMYCIN [Suspect]
     Active Substance: DACTINOMYCIN
     Indication: Embryonal rhabdomyosarcoma
     Route: 065
     Dates: start: 20210310
  9. DACTINOMYCIN [Suspect]
     Active Substance: DACTINOMYCIN
     Dosage: DOSE REDUCED TO 50%
     Route: 065
     Dates: start: 20210408, end: 20210408

REACTIONS (1)
  - Melaena [Recovered/Resolved with Sequelae]

NARRATIVE: CASE EVENT DATE: 20210416
